FAERS Safety Report 19101778 (Version 1)
Quarter: 2021Q2

REPORT INFORMATION
  Report Type: Spontaneous
  Country: US (occurrence: US)
  Receive Date: 20210407
  Receipt Date: 20210407
  Transmission Date: 20210717
  Serious: Yes (Other)
  Sender: FDA-Public Use
  Company Number: None

PATIENT
  Age: 59 Year
  Sex: Female

DRUGS (2)
  1. ZYCLARA [Concomitant]
     Active Substance: IMIQUIMOD
     Dates: start: 20210225, end: 20210331
  2. ZYCLARA [Suspect]
     Active Substance: IMIQUIMOD
     Indication: BASAL CELL CARCINOMA
     Dates: start: 20210225, end: 20210331

REACTIONS (2)
  - Headache [None]
  - Back pain [None]

NARRATIVE: CASE EVENT DATE: 20210331
